FAERS Safety Report 12586999 (Version 2)
Quarter: 2016Q3

REPORT INFORMATION
  Report Type: Report from Study
  Country: TW (occurrence: TW)
  Receive Date: 20160725
  Receipt Date: 20160802
  Transmission Date: 20161109
  Serious: Yes (Hospitalization, Other)
  Sender: FDA-Public Use
  Company Number: TW-JNJFOC-20160712522

PATIENT
  Age: 82 Year
  Sex: Male
  Weight: 84 kg

DRUGS (17)
  1. PREDNISOLONE. [Concomitant]
     Active Substance: PREDNISOLONE
     Indication: GOUT
     Route: 065
     Dates: start: 20131126
  2. PREDNISOLONE. [Concomitant]
     Active Substance: PREDNISOLONE
     Indication: SYSTEMIC LUPUS ERYTHEMATOSUS
     Route: 065
     Dates: start: 20131126
  3. PREDNISOLONE. [Concomitant]
     Active Substance: PREDNISOLONE
     Indication: PRURITUS
     Route: 065
     Dates: start: 20131126
  4. LEVOCETIRIZINE [Concomitant]
     Active Substance: LEVOCETIRIZINE
     Indication: URTICARIA CHRONIC
     Route: 065
  5. PREDNISOLONE. [Concomitant]
     Active Substance: PREDNISOLONE
     Indication: ADDISON^S DISEASE
     Route: 065
     Dates: start: 20131126
  6. PREDNISOLONE. [Concomitant]
     Active Substance: PREDNISOLONE
     Indication: RHEUMATIC FEVER
     Route: 065
     Dates: start: 20131126
  7. KETOTIFEN [Concomitant]
     Active Substance: KETOTIFEN
     Indication: RHINITIS ALLERGIC
     Route: 065
     Dates: start: 20131126
  8. PREDNISOLONE. [Concomitant]
     Active Substance: PREDNISOLONE
     Indication: RHEUMATOID ARTHRITIS
     Route: 065
     Dates: start: 20131126
  9. KETOTIFEN [Concomitant]
     Active Substance: KETOTIFEN
     Indication: ASTHMA
     Route: 065
     Dates: start: 20131126
  10. STELARA [Suspect]
     Active Substance: USTEKINUMAB
     Indication: PSORIASIS
     Route: 058
     Dates: start: 20140114
  11. PREDNISOLONE. [Concomitant]
     Active Substance: PREDNISOLONE
     Indication: ASTHMA
     Route: 065
     Dates: start: 20131126
  12. PREDNISOLONE. [Concomitant]
     Active Substance: PREDNISOLONE
     Indication: DERMATITIS
     Route: 065
     Dates: start: 20131126
  13. KETOTIFEN [Concomitant]
     Active Substance: KETOTIFEN
     Indication: PRURITUS
     Route: 065
     Dates: start: 20131126
  14. KETOTIFEN [Concomitant]
     Active Substance: KETOTIFEN
     Indication: URTICARIA
     Route: 065
     Dates: start: 20131126
  15. LEVOCETIRIZINE [Concomitant]
     Active Substance: LEVOCETIRIZINE
     Indication: RHINITIS ALLERGIC
     Route: 065
  16. PREDNISOLONE. [Concomitant]
     Active Substance: PREDNISOLONE
     Indication: RHEUMATIC DISORDER
     Route: 065
     Dates: start: 20131126
  17. KETOTIFEN [Concomitant]
     Active Substance: KETOTIFEN
     Indication: DERMATITIS
     Route: 065
     Dates: start: 20131126

REACTIONS (3)
  - Acarodermatitis [Not Recovered/Not Resolved]
  - Enterococcal bacteraemia [Unknown]
  - Acinetobacter infection [Unknown]

NARRATIVE: CASE EVENT DATE: 20160706
